FAERS Safety Report 4726432-X (Version None)
Quarter: 2005Q3

REPORT INFORMATION
  Report Type: 
  Country: None (occurrence: None)
  Receive Date: 20050726
  Receipt Date: 20050322
  Transmission Date: 20060218
  Serious: No
  Sender: FDA-Public Use
  Company Number: REM_00096_2005

PATIENT
  Age: 56 Year
  Sex: Female

DRUGS (11)
  1. REMODULIN [Suspect]
     Indication: PULMONARY HYPERTENSION
     Dosage: NG/KG/MIN CONTINUOUS SC
     Route: 058
     Dates: start: 20040104
  2. CITALOPRAM [Concomitant]
  3. DIGOXIN [Concomitant]
  4. LIPITOR  /NET/ [Concomitant]
  5. SPIRONOLACTONE [Concomitant]
  6. FUROSEMIDE [Concomitant]
  7. WARFARIN [Concomitant]
  8. METOLAZONE [Concomitant]
  9. POTASSIUM CHLORIDE [Concomitant]
  10. METFORMIN [Concomitant]
  11. AVANDIA [Concomitant]

REACTIONS (1)
  - SYNCOPE [None]
